FAERS Safety Report 22526150 (Version 1)
Quarter: 2023Q2

REPORT INFORMATION
  Report Type: Spontaneous
  Country: US (occurrence: US)
  Receive Date: 20230606
  Receipt Date: 20230606
  Transmission Date: 20230722
  Serious: No
  Sender: FDA-Public Use
  Company Number: US-PFIZER INC-202300208978

PATIENT
  Age: 7 Year
  Sex: Female
  Weight: 24.7 kg

DRUGS (2)
  1. OXBRYTA [Suspect]
     Active Substance: VOXELOTOR
     Indication: Sickle cell disease
     Dosage: 900 MG, DAILY (TAKING 3 TABLETS ONCE A DAY, TOTAL OF 900 MG DAILY)
     Route: 048
     Dates: start: 20230425
  2. AMLODIPINE [Concomitant]
     Active Substance: AMLODIPINE BESYLATE
     Indication: Hypertension
     Dosage: 2.5 MG, 1X/DAY (ORALLY, ONCE A DAY)
     Route: 048

REACTIONS (3)
  - Oral discomfort [Not Recovered/Not Resolved]
  - Throat irritation [Not Recovered/Not Resolved]
  - Stomatitis [Not Recovered/Not Resolved]
